FAERS Safety Report 8185119-4 (Version None)
Quarter: 2012Q1

REPORT INFORMATION
  Report Type: 
  Country: None (occurrence: None)
  Receive Date: 20120305
  Receipt Date: 20120301
  Transmission Date: 20120608
  Serious: No
  Sender: FDA-Public Use
  Company Number: US-PFIZER INC-2012055474

PATIENT
  Sex: Female
  Weight: 53.515 kg

DRUGS (4)
  1. CHANTIX [Suspect]
     Indication: SMOKING CESSATION THERAPY
     Dosage: 0.5 MG, DAILY
     Dates: start: 20120101
  2. NIFEDIPINE [Concomitant]
     Indication: CARDIOVASCULAR DISORDER
     Dosage: 30 MG, DAILY
  3. CHANTIX [Suspect]
     Dosage: 1 MG, 2X/DAY
     Route: 048
     Dates: start: 20120101
  4. PRAVASTATIN SODIUM [Concomitant]
     Indication: CARDIOVASCULAR DISORDER
     Dosage: 80 MG, DAILY

REACTIONS (3)
  - RENAL DISORDER [None]
  - DRUG TOLERANCE [None]
  - ABNORMAL DREAMS [None]
